FAERS Safety Report 6017914-1 (Version None)
Quarter: 2008Q4

REPORT INFORMATION
  Report Type: 
  Country: None (occurrence: None)
  Receive Date: 20081223
  Receipt Date: 20081210
  Transmission Date: 20090506
  Serious: Yes (Hospitalization)
  Sender: FDA-Public Use
  Company Number: ES-JNJFOC-20081205389

PATIENT
  Age: 46 Year
  Sex: Female

DRUGS (4)
  1. ZALDIAR [Suspect]
     Indication: TENDONITIS
     Route: 048
  2. CAPTOPRIL [Concomitant]
  3. METFORMIN HCL [Concomitant]
  4. ENANTYUM [Concomitant]

REACTIONS (4)
  - BRADYCARDIA [None]
  - LOSS OF CONSCIOUSNESS [None]
  - NAUSEA [None]
  - SOMNOLENCE [None]
